FAERS Safety Report 15118454 (Version 2)
Quarter: 2018Q3

REPORT INFORMATION
  Report Type: Report from Study
  Country: DE (occurrence: DE)
  Receive Date: 20180708
  Receipt Date: 20180716
  Transmission Date: 20181010
  Serious: Yes (Other)
  Sender: FDA-Public Use
  Company Number: DE-BAXTER-2018BAX018670

PATIENT
  Age: 41 Year
  Sex: Male
  Weight: 85 kg

DRUGS (38)
  1. HOLOXAN [Suspect]
     Active Substance: IFOSFAMIDE
     Dosage: LAST DOSE PRIOR TO EVENT
     Route: 042
     Dates: start: 20180602, end: 20180602
  2. DOXORUBICIN [Suspect]
     Active Substance: DOXORUBICIN
     Indication: SARCOMA METASTATIC
     Dosage: GLOBAL COMPARATOR, DOSAGE FORM: INFUSION, 54MG, CYCLICAL (D1, D2, D3 OF A 21 DAY CYCLE), REGIMEN 2
     Route: 042
     Dates: start: 20180508
  3. MACROGOL [Concomitant]
     Active Substance: POLYETHYLENE GLYCOLS
     Indication: CLEAR CELL SARCOMA OF SOFT TISSUE
  4. METOCLOPRAMIDE. [Concomitant]
     Active Substance: METOCLOPRAMIDE
     Indication: CLEAR CELL SARCOMA OF SOFT TISSUE
     Route: 065
     Dates: start: 20180417
  5. ALIZAPRIDE [Concomitant]
     Active Substance: ALIZAPRIDE
     Indication: PROPHYLAXIS
     Route: 065
     Dates: start: 20180417
  6. DEXAMETHASONE. [Concomitant]
     Active Substance: DEXAMETHASONE
     Indication: PROPHYLAXIS
     Route: 065
     Dates: start: 20180417
  7. HOLOXAN [Suspect]
     Active Substance: IFOSFAMIDE
     Indication: SOFT TISSUE SARCOMA
     Dosage: GLOBAL COMPARATOR, DOSAGE FORM: INFUSION, 5400MG, CYCLICAL (D1, D2 OF 21 DAY CYCLE), REGIMEN 1
     Route: 042
     Dates: start: 20180417, end: 20180418
  8. OLARATUMAB [Suspect]
     Active Substance: OLARATUMAB
     Indication: SARCOMA METASTATIC
     Dosage: LAST DOSE PRIOR TO SAE
     Route: 042
     Dates: start: 20180606, end: 20180606
  9. ZOMETA [Concomitant]
     Active Substance: ZOLEDRONIC ACID
     Indication: PROPHYLAXIS
     Route: 065
     Dates: start: 201801
  10. DOXORUBICIN [Suspect]
     Active Substance: DOXORUBICIN
     Indication: SOFT TISSUE SARCOMA
     Dosage: GLOBAL COMPARATOR, DOSAGE FORM: INFUSION, 54MG, CYCLICAL (D1, D2 OF 21 DAY CYCLE), REGIMEN 1
     Route: 042
     Dates: start: 20180417, end: 20180418
  11. MACROGOL [Concomitant]
     Active Substance: POLYETHYLENE GLYCOLS
     Indication: PROPHYLAXIS
     Route: 065
     Dates: start: 20180417
  12. AMPHO MORONAL [Concomitant]
     Active Substance: AMPHOTERICIN B
     Indication: PREMEDICATION
     Route: 065
     Dates: start: 20180417
  13. MOVENTIG [Concomitant]
     Active Substance: NALOXEGOL OXALATE
     Indication: PROPHYLAXIS
     Route: 065
     Dates: start: 20180419
  14. CALCIUM WITH VITAMIN D [Concomitant]
     Active Substance: CALCIUM\VITAMIN D
     Indication: CLEAR CELL SARCOMA OF SOFT TISSUE
     Route: 065
     Dates: start: 20180417
  15. HYDROMORPHONE [Concomitant]
     Active Substance: HYDROMORPHONE
     Indication: PROPHYLAXIS
     Route: 065
     Dates: start: 20180417
  16. ONDANSETRON [Concomitant]
     Active Substance: ONDANSETRON
     Indication: PROPHYLAXIS
     Route: 065
     Dates: start: 20180417
  17. FUROSEMID [Concomitant]
     Active Substance: FUROSEMIDE
     Indication: PREMEDICATION
     Route: 065
     Dates: start: 20180417
  18. UROMITEXAN 400 MG [Suspect]
     Active Substance: MESNA
     Indication: SARCOMA METASTATIC
     Dosage: LAST DOSE PRIOR TO SAE
     Route: 042
     Dates: start: 20180602, end: 20180602
  19. OLARATUMAB [Suspect]
     Active Substance: OLARATUMAB
     Indication: SOFT TISSUE SARCOMA
     Dosage: DOSAGE FORM: INFUSION, 1350 MG, CYCLICAL (D1 AND D8 OF 21 DAY CYCLE), REGIMEN 1
     Route: 042
     Dates: start: 20180417
  20. NOVALGIN (METAMIZOLE SODIUM) [Concomitant]
     Active Substance: METAMIZOLE SODIUM
     Indication: PROPHYLAXIS
     Route: 065
     Dates: start: 20180417
  21. AMPHO MORONAL [Concomitant]
     Active Substance: AMPHOTERICIN B
     Indication: CLEAR CELL SARCOMA OF SOFT TISSUE
  22. DEXRAZOXANE. [Concomitant]
     Active Substance: DEXRAZOXANE
     Indication: PREMEDICATION
     Route: 065
     Dates: start: 20180417
  23. HOLOXAN [Suspect]
     Active Substance: IFOSFAMIDE
     Indication: SARCOMA METASTATIC
     Dosage: GLOBAL COMPARATOR, DOSAGE FORM: INFUSION, 5400MG, CYCLICAL (D1, D2, D3 AND D4 OF 21 DAY CYCLE), REGI
     Route: 042
     Dates: start: 20180508
  24. IDEOS [Concomitant]
     Active Substance: CALCIUM CARBONATE\CHOLECALCIFEROL
     Indication: PROPHYLAXIS
     Route: 065
     Dates: start: 20180418
  25. PANTOPRAZOL [Concomitant]
     Active Substance: PANTOPRAZOLE SODIUM
     Indication: CLEAR CELL SARCOMA OF SOFT TISSUE
  26. NATRIUMPICOSULFAT [Concomitant]
     Indication: CLEAR CELL SARCOMA OF SOFT TISSUE
     Route: 065
     Dates: start: 20180417
  27. FUROSEMID [Concomitant]
     Active Substance: FUROSEMIDE
     Indication: CLEAR CELL SARCOMA OF SOFT TISSUE
  28. LAXAN [Concomitant]
     Indication: PROPHYLAXIS
     Route: 065
     Dates: start: 20180417
  29. HYDROMORPHONE [Concomitant]
     Active Substance: HYDROMORPHONE
     Indication: CLEAR CELL SARCOMA OF SOFT TISSUE
  30. NEUPOGEN [Concomitant]
     Active Substance: FILGRASTIM
     Indication: CLEAR CELL SARCOMA OF SOFT TISSUE
     Route: 065
     Dates: start: 20180417
  31. TAVEGIL [Concomitant]
     Active Substance: CLEMASTINE FUMARATE
     Indication: PREMEDICATION
     Route: 065
     Dates: start: 20180417
  32. UROMITEXAN 400 MG [Suspect]
     Active Substance: MESNA
     Indication: SOFT TISSUE SARCOMA
     Dosage: GLOBAL COMPARATOR, DOSAGE FORM: INFUSION, ON DAY1, DAY 2 AND DAY3, REGIMEN 1
     Route: 042
     Dates: start: 20180417
  33. DOXORUBICIN [Suspect]
     Active Substance: DOXORUBICIN
     Dosage: LAST DOSE PRIOR TO SAE
     Route: 042
     Dates: start: 20180601, end: 20180601
  34. OXYCODON [Concomitant]
     Active Substance: OXYCODONE
     Indication: PROPHYLAXIS
     Route: 065
     Dates: start: 20180416
  35. PANTOPRAZOL [Concomitant]
     Active Substance: PANTOPRAZOLE SODIUM
     Indication: PREMEDICATION
     Route: 065
     Dates: start: 20180417
  36. PIRACETAM [Concomitant]
     Active Substance: PIRACETAM
     Indication: CLEAR CELL SARCOMA OF SOFT TISSUE
     Route: 065
     Dates: start: 20180417
  37. TAVEGIL [Concomitant]
     Active Substance: CLEMASTINE FUMARATE
     Indication: CLEAR CELL SARCOMA OF SOFT TISSUE
  38. DEXRAZOXANE. [Concomitant]
     Active Substance: DEXRAZOXANE
     Indication: CLEAR CELL SARCOMA OF SOFT TISSUE

REACTIONS (2)
  - Febrile neutropenia [Not Recovered/Not Resolved]
  - Tumour haemorrhage [Unknown]

NARRATIVE: CASE EVENT DATE: 20180607
